FAERS Safety Report 9560138 (Version 1)
Quarter: 2013Q3

REPORT INFORMATION
  Report Type: Spontaneous
  Country: FR (occurrence: None)
  Receive Date: 20130925
  Receipt Date: 20130925
  Transmission Date: 20140515
  Serious: Yes (Hospitalization)
  Sender: FDA-Public Use
  Company Number: ACO_38372_2013

PATIENT
  Age: 61 Year
  Sex: Female
  Weight: 75 kg

DRUGS (4)
  1. FAMPRIDINE-SR (FAMPRIDINE) TABLET [Suspect]
     Indication: MULTIPLE SCLEROSIS
     Route: 048
     Dates: start: 20130501
  2. OXYBUTYNIN CHLORIDE (OXYBUTYNIN HYDROCHLORIDE) [Suspect]
  3. LISINOPRIL (LISINOPRIL DILHYDRATE) [Concomitant]
  4. URAPIDIL (URAPIDIL HYDROCHLORIDE) [Concomitant]

REACTIONS (3)
  - Splenic rupture [None]
  - Fall [None]
  - Anaemia [None]
